FAERS Safety Report 8827513 (Version 3)
Quarter: 2014Q1

REPORT INFORMATION
  Report Type: Spontaneous
  Country: US (occurrence: US)
  Receive Date: 20121008
  Receipt Date: 20140320
  Transmission Date: 20141002
  Serious: Yes (Hospitalization)
  Sender: FDA-Public Use
  Company Number: US-BAYER-2012-104334

PATIENT
  Age: 31 Year
  Sex: Female
  Weight: 83.9 kg

DRUGS (7)
  1. YASMIN [Suspect]
     Dosage: UNK
     Dates: start: 20060301
  2. GENTAMICIN [Concomitant]
     Dosage: 0.3%
     Route: 047
     Dates: start: 20070816
  3. ACYCLOVIR [ACICLOVIR] [Concomitant]
     Dosage: 200 MG, UNK
     Route: 048
     Dates: start: 20070921
  4. EFFEXOR [Concomitant]
     Dosage: UNK
     Route: 048
     Dates: start: 20071111
  5. MOTRIN [Concomitant]
  6. ZINCON [Concomitant]
  7. FEMCON FE [Concomitant]

REACTIONS (10)
  - Cholecystectomy [None]
  - Cholecystitis chronic [None]
  - Biliary dyskinesia [None]
  - Pain [None]
  - Emotional distress [None]
  - Injury [None]
  - Anhedonia [None]
  - Anxiety [None]
  - General physical health deterioration [None]
  - Pain [None]
